FAERS Safety Report 8646423 (Version 3)
Quarter: 2012Q4

REPORT INFORMATION
  Report Type: 
  Country: US (occurrence: US)
  Receive Date: 20120702
  Receipt Date: 20121004
  Transmission Date: 20130627
  Serious: Yes (Other)
  Sender: FDA-Public Use
  Company Number: US-BAYER-2012-063834

PATIENT
  Age: 80 Year
  Sex: Female

DRUGS (3)
  1. NEXAVAR [Suspect]
     Indication: HEPATIC NEOPLASM MALIGNANT
     Dosage: 200 mg, BID
     Dates: start: 20120522, end: 201206
  2. NEXAVAR [Suspect]
     Indication: HEPATIC NEOPLASM MALIGNANT
     Dosage: Daily dose 600 mg
     Dates: start: 201206, end: 20120611
  3. NEXAVAR [Suspect]
     Indication: HEPATIC NEOPLASM MALIGNANT
     Dosage: 200 mg, BID
     Route: 048
     Dates: start: 20120612

REACTIONS (8)
  - Blister [Recovering/Resolving]
  - Pain [Recovering/Resolving]
  - Nausea [Recovering/Resolving]
  - Syncope [Recovering/Resolving]
  - Fatigue [Not Recovered/Not Resolved]
  - Pruritus generalised [Recovering/Resolving]
  - Urticaria [Recovering/Resolving]
  - Hepatic cancer [Not Recovered/Not Resolved]
